FAERS Safety Report 8392348 (Version 7)
Quarter: 2012Q4

REPORT INFORMATION
  Report Type: 
  Country: CA (occurrence: CA)
  Receive Date: 20120206
  Receipt Date: 20120928
  Transmission Date: 20130627
  Serious: Yes (Death, Other)
  Sender: FDA-Public Use
  Company Number: PHHY2010CA33948

PATIENT
  Age: 65 Year
  Sex: Female

DRUGS (6)
  1. SANDOSTATIN LAR [Suspect]
     Indication: CARCINOID TUMOUR
     Dosage: 30 mg, QMO
     Route: 030
     Dates: start: 20100426
  2. SANDOSTATIN LAR [Suspect]
     Dosage: 30 mg, QMO
     Route: 030
  3. SANDOSTATIN LAR [Suspect]
     Dosage: 30 mg, every four weeks
     Route: 030
  4. SANDOSTATIN LAR [Suspect]
     Dosage: 30 mg, QMO
     Route: 030
  5. SANDOSTATIN LAR [Suspect]
     Dosage: 30 mg, QMO
     Route: 030
     Dates: end: 20120419
  6. PROBIOTICS [Concomitant]

REACTIONS (22)
  - Death [Fatal]
  - Food poisoning [Unknown]
  - Dyspepsia [Unknown]
  - Asthenia [Unknown]
  - Intestinal obstruction [Recovering/Resolving]
  - Epigastric discomfort [Recovering/Resolving]
  - Abdominal pain [Recovered/Resolved]
  - Gastrointestinal pain [Unknown]
  - Flushing [Unknown]
  - Gastrooesophageal reflux disease [Recovering/Resolving]
  - Weight decreased [Not Recovered/Not Resolved]
  - Nasopharyngitis [Unknown]
  - Drug dispensing error [Unknown]
  - Oral discomfort [Unknown]
  - Pyrexia [Unknown]
  - Malaise [Recovering/Resolving]
  - Anxiety [Unknown]
  - Stress [Unknown]
  - Nausea [Recovering/Resolving]
  - Abdominal distension [Unknown]
  - Diarrhoea [Unknown]
  - Hypophagia [Unknown]
